FAERS Safety Report 4710913-9 (Version None)
Quarter: 2005Q3

REPORT INFORMATION
  Report Type: 
  Country: None (occurrence: None)
  Receive Date: 20050708
  Receipt Date: 20050627
  Transmission Date: 20060218
  Serious: Yes (Hospitalization)
  Sender: FDA-Public Use
  Company Number: GXKR2005GB01283

PATIENT
  Age: 71 Year
  Sex: Female

DRUGS (7)
  1. ACETYLSALICYLIC ACID SRT [Suspect]
     Indication: CEREBROVASCULAR ACCIDENT
     Dosage: 75 MG, QD, ORAL
     Route: 048
     Dates: start: 19750101, end: 20050606
  2. ARTHROTEC [Suspect]
     Indication: PAIN
     Dosage: SEE IMAGE
     Route: 048
     Dates: start: 20040101, end: 20050526
  3. ARTHROTEC [Suspect]
     Indication: PAIN
     Dosage: SEE IMAGE
     Route: 048
     Dates: start: 20050526, end: 20050606
  4. LISINOPRIL [Concomitant]
  5. ATORVASTATIN CALCIUM [Concomitant]
  6. BURINEX K (BUMETADINE, POTASSIUM CHLORIDE) [Concomitant]
  7. DIHYDROCODEINE (DIHYDROCODEINE) [Concomitant]

REACTIONS (7)
  - ABDOMINAL PAIN UPPER [None]
  - BLOOD CREATININE INCREASED [None]
  - BLOOD UREA INCREASED [None]
  - FAECES DISCOLOURED [None]
  - GASTRIC ULCER [None]
  - HAEMATEMESIS [None]
  - HAEMOGLOBIN DECREASED [None]
